FAERS Safety Report 8268781-7 (Version None)
Quarter: 2012Q2

REPORT INFORMATION
  Report Type: 
  Country: None (occurrence: None)
  Receive Date: 20120409
  Receipt Date: 20120409
  Transmission Date: 20120825
  Serious: Yes (Life-Threatening)
  Sender: FDA-Public Use
  Company Number: None

PATIENT
  Age: 32 Year
  Sex: Female
  Weight: 61.234 kg

DRUGS (1)
  1. AMBIEN [Suspect]
     Indication: INSOMNIA
     Dates: start: 20111201, end: 20120330

REACTIONS (4)
  - SOMNAMBULISM [None]
  - MEMORY IMPAIRMENT [None]
  - ALCOHOL USE [None]
  - ROAD TRAFFIC ACCIDENT [None]
